FAERS Safety Report 5425543-3 (Version None)
Quarter: 2007Q3

REPORT INFORMATION
  Report Type: 
  Country: None (occurrence: None)
  Receive Date: 20070824
  Receipt Date: 20070815
  Transmission Date: 20080115
  Serious: Yes (Hospitalization, Disabling, Other)
  Sender: FDA-Public Use
  Company Number: US-PFIZER INC-2007045154

PATIENT
  Sex: Female
  Weight: 90.7 kg

DRUGS (1)
  1. CELEBREX [Suspect]
     Indication: ARTHRITIS

REACTIONS (5)
  - ARTERIAL OCCLUSIVE DISEASE [None]
  - ARTHRITIS [None]
  - CARDIOVASCULAR DISORDER [None]
  - CHEST PAIN [None]
  - GASTRIC HAEMORRHAGE [None]
